FAERS Safety Report 7674026-9 (Version None)
Quarter: 2011Q3

REPORT INFORMATION
  Report Type: 
  Country: None (occurrence: None)
  Receive Date: 20110810
  Receipt Date: 20110805
  Transmission Date: 20111222
  Serious: Yes (Other)
  Sender: FDA-Public Use
  Company Number: FR-BRISTOL-MYERS SQUIBB COMPANY-15952674

PATIENT
  Age: 46 Year
  Sex: Male

DRUGS (3)
  1. TRUVADA [Suspect]
     Indication: HIV INFECTION
     Dosage: TRUVADA 200 MG/245 MG FILM-COATED TABLET
     Route: 048
     Dates: start: 20060113
  2. NORVIR [Suspect]
     Indication: HIV INFECTION
     Dosage: CAPS
     Route: 048
     Dates: start: 20060113
  3. REYATAZ [Suspect]
     Indication: HIV INFECTION
     Dosage: 1DF=1 CAPSULE
     Route: 048
     Dates: start: 20060113, end: 20110329

REACTIONS (1)
  - RENAL COLIC [None]
